FAERS Safety Report 15665136 (Version 1)
Quarter: 2018Q4

REPORT INFORMATION
  Report Type: Report from Study
  Country: US (occurrence: US)
  Receive Date: 20181128
  Receipt Date: 20181128
  Transmission Date: 20190205
  Serious: Yes (Death, Other)
  Sender: FDA-Public Use
  Company Number: US-SAKK-2018SA160656AA

PATIENT
  Age: 43 Year
  Sex: Male

DRUGS (1)
  1. ENOXAPARIN SODIUM. [Suspect]
     Active Substance: ENOXAPARIN SODIUM
     Indication: PRODUCT USED FOR UNKNOWN INDICATION
     Dosage: 80 MG, BID
     Route: 058
     Dates: start: 201711, end: 20180518

REACTIONS (2)
  - Pulmonary embolism [Fatal]
  - Death [Fatal]

NARRATIVE: CASE EVENT DATE: 20180518
